FAERS Safety Report 4986177-8 (Version None)
Quarter: 2006Q2

REPORT INFORMATION
  Report Type: 
  Country: None (occurrence: None)
  Receive Date: 20060428
  Receipt Date: 20051104
  Transmission Date: 20061013
  Serious: Yes (Hospitalization)
  Sender: FDA-Public Use
  Company Number: US-MERCK-0511USA01044

PATIENT
  Age: 50 Year
  Sex: Male
  Weight: 79 kg

DRUGS (10)
  1. VIOXX [Suspect]
     Indication: ARTHRITIS
     Route: 048
     Dates: start: 20000801, end: 20001101
  2. VIOXX [Suspect]
     Route: 048
     Dates: start: 20020101, end: 20030901
  3. NAPROSYN [Concomitant]
     Route: 065
  4. ALEVE [Concomitant]
     Route: 065
  5. GRISEOFULVIN [Concomitant]
     Route: 065
  6. CLEOCIN HYDROCHLORIDE [Concomitant]
     Route: 065
  7. IBUPROFEN [Concomitant]
     Route: 065
  8. VIAGRA [Concomitant]
     Route: 065
  9. ACETAMINOPHEN AND PROPOXYPHENE NAPSYLATE [Concomitant]
     Route: 065
  10. [THERAPY UNSPECIFIED] [Concomitant]
     Route: 065

REACTIONS (5)
  - DIARRHOEA [None]
  - DILATATION ATRIAL [None]
  - MYOCARDIAL INFARCTION [None]
  - SYNCOPE [None]
  - VIRAL INFECTION [None]
